FAERS Safety Report 4990306-X (Version None)
Quarter: 2006Q2

REPORT INFORMATION
  Report Type: 
  Country: None (occurrence: None)
  Receive Date: 20060427
  Receipt Date: 20060418
  Transmission Date: 20061013
  Serious: Yes (Death, Hospitalization)
  Sender: FDA-Public Use
  Company Number: 200601IM000130

PATIENT
  Age: 70 Year
  Sex: Male
  Weight: 87 kg

DRUGS (8)
  1. BLINDED THERAPY (INTERFERON GAMMA-1B) [Suspect]
     Indication: IDIOPATHIC PULMONARY FIBROSIS
     Dosage: 200 UG, TIW, SUBCUTANEOUS
     Route: 058
     Dates: start: 20041125, end: 20060120
  2. CORTANCYL [Concomitant]
  3. DIFFU K [Concomitant]
  4. PLAVIX [Concomitant]
  5. FIXICAL [Concomitant]
  6. ATARAX [Concomitant]
  7. INOPOMP [Concomitant]
  8. ACETYLCYSTEINE [Concomitant]

REACTIONS (3)
  - ACUTE RESPIRATORY DISTRESS SYNDROME [None]
  - CHILLS [None]
  - HYPOTENSION [None]
